FAERS Safety Report 7494793-7 (Version None)
Quarter: 2011Q2

REPORT INFORMATION
  Report Type: 
  Country: None (occurrence: None)
  Receive Date: 20110520
  Receipt Date: 20110512
  Transmission Date: 20111010
  Serious: Yes (Hospitalization)
  Sender: FDA-Public Use
  Company Number: A0919430A

PATIENT
  Age: 62 Year
  Sex: Male

DRUGS (7)
  1. TRICOR [Concomitant]
  2. PROZAC [Concomitant]
  3. VERPAMIL HCL [Concomitant]
  4. VENTOLIN [Concomitant]
  5. ADVAIR DISKUS 100/50 [Suspect]
     Indication: CHRONIC OBSTRUCTIVE PULMONARY DISEASE
     Dosage: 1PUFF TWICE PER DAY
     Route: 055
  6. CARDURA [Concomitant]
  7. ANDROGEL [Concomitant]

REACTIONS (2)
  - DYSPNOEA [None]
  - PRODUCT QUALITY ISSUE [None]
